FAERS Safety Report 5107310-3 (Version None)
Quarter: 2006Q3

REPORT INFORMATION
  Report Type: 
  Country: None (occurrence: None)
  Receive Date: 20060912
  Receipt Date: 20060831
  Transmission Date: 20061208
  Serious: Yes (Hospitalization)
  Sender: FDA-Public Use
  Company Number: HQWYE360416MAR06

PATIENT
  Age: 63 Year
  Sex: Male

DRUGS (4)
  1. PANTOPRAZOLE SODIUM [Suspect]
     Indication: GASTROOESOPHAGEAL REFLUX DISEASE
     Dosage: 40 MG 1X PER 1 DAY
     Route: 048
     Dates: start: 20040101, end: 20051105
  2. TALCID              (HYDROTALCITE) [Concomitant]
  3. ULCOGANT                 (SUCRALFATE) [Concomitant]
  4. H2 BLOCKER                     (CIMETIDINE HYDROCHLORIDE) [Concomitant]

REACTIONS (5)
  - BLOOD CHROMOGRANIN A INCREASED [None]
  - CREATININE RENAL CLEARANCE INCREASED [None]
  - NAUSEA [None]
  - NIGHT SWEATS [None]
  - WEIGHT DECREASED [None]
